FAERS Safety Report 16885085 (Version 1)
Quarter: 2019Q4

REPORT INFORMATION
  Report Type: Spontaneous
  Country: AU (occurrence: AU)
  Receive Date: 20191004
  Receipt Date: 20191004
  Transmission Date: 20200122
  Serious: Yes (Other)
  Sender: FDA-Public Use
  Company Number: AU-BIOVITRUM-2019AU3301

PATIENT
  Age: 16 Year
  Sex: Male
  Weight: 115 kg

DRUGS (1)
  1. KINERET [Suspect]
     Active Substance: ANAKINRA
     Indication: TUMOUR NECROSIS FACTOR RECEPTOR-ASSOCIATED PERIODIC SYNDROME

REACTIONS (2)
  - Off label use [Not Recovered/Not Resolved]
  - Glomerulonephritis [Not Recovered/Not Resolved]
